FAERS Safety Report 21930209 (Version 1)
Quarter: 2023Q1

REPORT INFORMATION
  Report Type: Spontaneous
  Country: AL (occurrence: AL)
  Receive Date: 20230131
  Receipt Date: 20230131
  Transmission Date: 20230417
  Serious: Yes (Life-Threatening, Hospitalization)
  Sender: FDA-Public Use
  Company Number: AL-SUN PHARMACEUTICAL INDUSTRIES LTD-2023R1-375935

PATIENT
  Sex: Male

DRUGS (3)
  1. DEXAMETHASONE [Suspect]
     Active Substance: DEXAMETHASONE
     Indication: COVID-19 pneumonia
     Dosage: 12 MILLIGRAM, DAILY
     Route: 064
  2. HEPARIN [Suspect]
     Active Substance: HEPARIN SODIUM
     Indication: COVID-19 pneumonia
     Dosage: 1000U
     Route: 064
  3. IMIPENEM [Suspect]
     Active Substance: IMIPENEM
     Indication: COVID-19 pneumonia
     Dosage: DA
     Route: 064

REACTIONS (2)
  - Foetal exposure during pregnancy [Not Recovered/Not Resolved]
  - Premature baby [Unknown]
